FAERS Safety Report 14243179 (Version 1)
Quarter: 2017Q4

REPORT INFORMATION
  Report Type: Other
  Country: DE (occurrence: DE)
  Receive Date: 20171201
  Receipt Date: 20171201
  Transmission Date: 20180321
  Serious: Yes (Life-Threatening)
  Sender: FDA-Public Use
  Company Number: DE-ALSI-201700420

PATIENT
  Age: 41 Year
  Sex: Female

DRUGS (4)
  1. SUFENTANIL CITRATE. [Concomitant]
     Active Substance: SUFENTANIL CITRATE
  2. OXYGEN. [Concomitant]
     Active Substance: OXYGEN
  3. CARBON DIOXIDE. [Suspect]
     Active Substance: CARBON DIOXIDE
     Indication: LAPAROSCOPY
     Route: 033
  4. SEVOFLURANE. [Concomitant]
     Active Substance: SEVOFLURANE

REACTIONS (2)
  - Air embolism [Recovered/Resolved]
  - Paradoxical embolism [Recovered/Resolved]
